FAERS Safety Report 14719188 (Version 1)
Quarter: 2018Q2

REPORT INFORMATION
  Report Type: Spontaneous
  Country: CA (occurrence: CA)
  Receive Date: 20180405
  Receipt Date: 20180405
  Transmission Date: 20180711
  Serious: Yes (Hospitalization, Other)
  Sender: FDA-Public Use
  Company Number: CA-ROCHE-2099847

PATIENT
  Sex: Male

DRUGS (2)
  1. XOLAIR [Suspect]
     Active Substance: OMALIZUMAB
     Dosage: UNK
     Route: 058
     Dates: start: 201711, end: 201711
  2. XOLAIR [Suspect]
     Active Substance: OMALIZUMAB
     Indication: ASTHMA
     Dosage: 300 MG, EVERY 4 WEEKS
     Route: 058
     Dates: start: 20121204

REACTIONS (6)
  - Small intestinal perforation [Unknown]
  - Diaphragmatic paralysis [Unknown]
  - Dyspnoea [Unknown]
  - Asthma [Unknown]
  - Road traffic accident [Unknown]
  - Oesophageal rupture [Unknown]

NARRATIVE: CASE EVENT DATE: 2017
